FAERS Safety Report 5694268-1 (Version None)
Quarter: 2008Q2

REPORT INFORMATION
  Report Type: 
  Country: None (occurrence: None)
  Receive Date: 20080404
  Receipt Date: 20080304
  Transmission Date: 20081010
  Serious: No
  Sender: FDA-Public Use
  Company Number: US-BAYER-200816670NA

PATIENT
  Age: 27 Year
  Sex: Female

DRUGS (2)
  1. YAZ [Suspect]
     Indication: CONTRACEPTION
     Route: 048
     Dates: start: 20080101
  2. DOXYCYCLINE [Concomitant]

REACTIONS (3)
  - MENORRHAGIA [None]
  - NAUSEA [None]
  - VOMITING [None]
